FAERS Safety Report 23972032 (Version 1)
Quarter: 2024Q2

REPORT INFORMATION
  Report Type: Spontaneous
  Country: CN (occurrence: CN)
  Receive Date: 20240613
  Receipt Date: 20240613
  Transmission Date: 20240716
  Serious: Yes (Life-Threatening)
  Sender: FDA-Public Use
  Company Number: CN-SA-SAC20240611000538

PATIENT
  Age: 66 Year
  Sex: Female
  Weight: 63 kg

DRUGS (2)
  1. PLAVIX [Suspect]
     Active Substance: CLOPIDOGREL BISULFATE
     Indication: Symptomatic treatment
     Dosage: 75 MG, QD
     Route: 048
     Dates: start: 20240601, end: 20240605
  2. PLAVIX [Suspect]
     Active Substance: CLOPIDOGREL BISULFATE
     Indication: Symptomatic treatment

REACTIONS (5)
  - Petechiae [Recovering/Resolving]
  - Rash erythematous [Recovering/Resolving]
  - Dyspnoea [Recovering/Resolving]
  - Pruritus [Recovering/Resolving]
  - Wheezing [Recovering/Resolving]

NARRATIVE: CASE EVENT DATE: 20240602
